FAERS Safety Report 9270366 (Version 1)
Quarter: 2013Q2

REPORT INFORMATION
  Report Type: Spontaneous
  Country: US (occurrence: US)
  Receive Date: 20130503
  Receipt Date: 20130503
  Transmission Date: 20140414
  Serious: No
  Sender: FDA-Public Use
  Company Number: US-BAYER-2013-053695

PATIENT
  Age: 86 Year
  Sex: Female

DRUGS (2)
  1. CIPRO [Suspect]
     Indication: EAR INFECTION
     Dosage: UNK
     Route: 048
  2. WELLBUTRIN [Concomitant]

REACTIONS (1)
  - Tinnitus [None]
